FAERS Safety Report 6003566-3 (Version None)
Quarter: 2008Q4

REPORT INFORMATION
  Report Type: 
  Country: None (occurrence: None)
  Receive Date: 20081212
  Receipt Date: 20081212
  Transmission Date: 20090506
  Serious: No
  Sender: FDA-Public Use
  Company Number: None

PATIENT
  Sex: Male
  Weight: 169 kg

DRUGS (17)
  1. FLONASE [Suspect]
     Dosage: 50 MCG SPRAY SUSP 1 SPRAY QD NASAL
     Route: 045
     Dates: start: 20081125, end: 20081211
  2. AMIODARONE HCL [Concomitant]
  3. AMOXICILLIN [Concomitant]
  4. ATENOLOL [Concomitant]
  5. COUMADIN [Concomitant]
  6. ECASA (ASPIRINE ENTERIC COATED) [Concomitant]
  7. FLOMAX [Concomitant]
  8. FUROSEMIDE [Concomitant]
  9. K-DUR (KCL SLOW RELEASE) [Concomitant]
  10. LANOXIN [Concomitant]
  11. LEVOXYL [Concomitant]
  12. LISINOPRIL [Concomitant]
  13. NTG 1/150 (NITROGLYCERIN) [Concomitant]
  14. PLAVIX [Concomitant]
  15. PRILOSEC [Concomitant]
  16. WELCHOL [Concomitant]
  17. ZETIA [Concomitant]

REACTIONS (2)
  - DYSGEUSIA [None]
  - HEADACHE [None]
